FAERS Safety Report 6330401-6 (Version None)
Quarter: 2009Q3

REPORT INFORMATION
  Report Type: 
  Country: None (occurrence: None)
  Receive Date: 20090826
  Receipt Date: 20090826
  Transmission Date: 20100115
  Serious: Yes (Death)
  Sender: FDA-Public Use
  Company Number: None

PATIENT
  Sex: Male
  Weight: 83.0083 kg

DRUGS (1)
  1. CARBOPLATIN [Suspect]
     Indication: BLADDER CANCER
     Dosage: 409MG O 21 DAYS 042
     Dates: start: 20090805

REACTIONS (6)
  - CONVULSION [None]
  - ERYTHEMA [None]
  - PULSE ABSENT [None]
  - RESPIRATORY ARREST [None]
  - UNRESPONSIVE TO STIMULI [None]
  - VENTRICULAR FIBRILLATION [None]
